FAERS Safety Report 23226774 (Version 1)
Quarter: 2023Q4

REPORT INFORMATION
  Report Type: Spontaneous
  Country: CN (occurrence: CN)
  Receive Date: 20231124
  Receipt Date: 20231124
  Transmission Date: 20240110
  Serious: Yes (Hospitalization)
  Sender: FDA-Public Use
  Company Number: CN-NAPPMUNDI-GBR-2023-0112479

PATIENT
  Age: 57 Year
  Sex: Female
  Weight: 50 kg

DRUGS (2)
  1. OXYCONTIN [Suspect]
     Active Substance: OXYCODONE HYDROCHLORIDE
     Indication: Pain
     Dosage: 10 MILLIGRAM, BID
     Route: 048
     Dates: start: 20231101, end: 20231107
  2. OXYCONTIN [Suspect]
     Active Substance: OXYCODONE HYDROCHLORIDE
     Dosage: 30 MILLIGRAM, BID
     Route: 048
     Dates: start: 20231113, end: 20231116

REACTIONS (2)
  - Pruritus [Recovering/Resolving]
  - Scratch [Unknown]

NARRATIVE: CASE EVENT DATE: 20231116
